FAERS Safety Report 16559658 (Version 1)
Quarter: 2019Q3

REPORT INFORMATION
  Report Type: Spontaneous
  Country: US (occurrence: US)
  Receive Date: 20190530
  Receipt Date: 20190530
  Transmission Date: 20191004
  Serious: No
  Sender: FDA-Public Use
  Company Number: None

PATIENT

DRUGS (2)
  1. NALOXONE HCL [Suspect]
     Active Substance: NALOXONE HYDROCHLORIDE
     Route: 058
  2. HEPARIN SOD. INJECTION 5,000 UNITS/ML HEPARIN SODIUM [Suspect]
     Active Substance: HEPARIN SODIUM
     Dosage: ?          OTHER STRENGTH:5000 UNITS PER ML;?
     Route: 058

REACTIONS (3)
  - Product appearance confusion [None]
  - Product storage error [None]
  - Intercepted product dispensing error [None]
